FAERS Safety Report 6858404-3 (Version None)
Quarter: 2010Q3

REPORT INFORMATION
  Report Type: 
  Country: None (occurrence: None)
  Receive Date: 20100719
  Receipt Date: 20080203
  Transmission Date: 20110219
  Serious: No
  Sender: FDA-Public Use
  Company Number: US-PFIZER INC-2008012913

PATIENT
  Sex: Female
  Weight: 58.1 kg

DRUGS (7)
  1. CHANTIX [Suspect]
     Indication: SMOKING CESSATION THERAPY
     Dates: start: 20080101
  2. CALCIUM [Concomitant]
  3. PREDNISONE [Concomitant]
  4. NEURONTIN [Concomitant]
  5. HYPERICUM PERFORATUM [Concomitant]
  6. VITAMIN E [Concomitant]
  7. ACETYLSALICYLIC ACID [Concomitant]

REACTIONS (1)
  - CONSTIPATION [None]
